FAERS Safety Report 15722625 (Version 1)
Quarter: 2018Q4

REPORT INFORMATION
  Report Type: Spontaneous
  Country: US (occurrence: US)
  Receive Date: 20181213
  Receipt Date: 20181213
  Transmission Date: 20190205
  Serious: Yes (Hospitalization, Other)
  Sender: FDA-Public Use
  Company Number: None

PATIENT
  Age: 25 Year
  Sex: Female
  Weight: 50 kg

DRUGS (1)
  1. RECOTHROM [Suspect]
     Active Substance: THROMBIN ALFA
     Indication: GINGIVAL BLEEDING
     Route: 061
     Dates: start: 20181116, end: 20181116

REACTIONS (6)
  - Wrong product administered [None]
  - Device difficult to use [None]
  - Unresponsive to stimuli [None]
  - Device issue [None]
  - Product label confusion [None]
  - Injury associated with device [None]

NARRATIVE: CASE EVENT DATE: 20181116
